FAERS Safety Report 8542604-0 (Version None)
Quarter: 2012Q3

REPORT INFORMATION
  Report Type: 
  Country: None (occurrence: None)
  Receive Date: 20120726
  Receipt Date: 20120711
  Transmission Date: 20120928
  Serious: Yes (Death)
  Sender: FDA-Public Use
  Company Number: GB-009507513-1207GBR006332

PATIENT

DRUGS (27)
  1. SPIRONOLACTONE [Suspect]
  2. TRAMADOL HCL [Concomitant]
  3. AMOXICILLIN AND CLAVULANATE POTASSIUM [Concomitant]
  4. FORTISIP [Concomitant]
  5. METHOTREXATE [Concomitant]
  6. BUMETANIDE [Suspect]
  7. ADENOSINE [Concomitant]
  8. OMEPRAZOLE [Concomitant]
  9. BISOPROLOL FUMARATE [Concomitant]
  10. TEICOPLANIN [Concomitant]
     Indication: PNEUMONIA
  11. WARFARIN SODIUM [Concomitant]
     Indication: PULMONARY EMBOLISM
  12. ZOCOR [Suspect]
     Route: 048
  13. FUROSEMIDE [Concomitant]
  14. CLARITHROMYCIN [Suspect]
     Indication: PNEUMONIA
     Dosage: 500 MG, BID
     Route: 048
     Dates: start: 20120512, end: 20120521
  15. AMIODARONE HYDROCHLORIDE [Concomitant]
  16. FOLIC ACID [Concomitant]
  17. METOCLOPRAMIDE [Concomitant]
  18. ADCAL-D3 [Concomitant]
  19. CANDESARTAN [Concomitant]
  20. DIORALYTE [Concomitant]
  21. ACETAMINOPHEN [Concomitant]
  22. CLOTRIMAZOLE [Concomitant]
  23. ACETAMINOPHEN AND CODEINE PHOSPHATE [Concomitant]
  24. DALTEPARIN SODIUM [Concomitant]
  25. DICLOFENAC DIETHYLAMINE [Concomitant]
  26. GENTAMICIN [Concomitant]
  27. HEPARIN [Concomitant]
     Indication: PULMONARY EMBOLISM

REACTIONS (22)
  - RENAL FAILURE ACUTE [None]
  - BLISTER [None]
  - SCAB [None]
  - PRURITUS [None]
  - PAIN [None]
  - EXFOLIATIVE RASH [None]
  - TOXIC EPIDERMAL NECROLYSIS [None]
  - DRY SKIN [None]
  - BLOOD CREATININE INCREASED [None]
  - RASH PRURITIC [None]
  - OEDEMA PERIPHERAL [None]
  - ECZEMA [None]
  - FLUID OVERLOAD [None]
  - ATRIAL FIBRILLATION [None]
  - ERYTHEMA [None]
  - HYPERSENSITIVITY [None]
  - STEVENS-JOHNSON SYNDROME [None]
  - RASH GENERALISED [None]
  - HAEMOGLOBIN DECREASED [None]
  - RASH MACULO-PAPULAR [None]
  - PETECHIAE [None]
  - SWELLING [None]
